FAERS Safety Report 5313853-X (Version None)
Quarter: 2007Q2

REPORT INFORMATION
  Report Type: 
  Country: None (occurrence: None)
  Receive Date: 20070501
  Receipt Date: 20070424
  Transmission Date: 20071010
  Serious: Yes (Other)
  Sender: FDA-Public Use
  Company Number: AU-GLAXOSMITHKLINE-B0467479A

PATIENT
  Sex: Male

DRUGS (10)
  1. AVANDIA [Suspect]
     Indication: DRUG USE FOR UNKNOWN INDICATION
     Dosage: 4MG PER DAY
     Dates: end: 20070415
  2. DIABEX [Concomitant]
     Dosage: 1000MG TWICE PER DAY
  3. UNKNOWN DRUG [Concomitant]
  4. METHOTREXATE [Concomitant]
     Indication: ARTHRITIS
     Dosage: 10MG WEEKLY
  5. RENITEC [Concomitant]
     Dosage: 10MG PER DAY
  6. ORUDIS [Concomitant]
  7. AMARYL [Concomitant]
     Indication: DIABETES MELLITUS
  8. ASPIRIN [Concomitant]
  9. LIPITOR [Concomitant]
  10. ORUVAIL SR [Concomitant]
     Dosage: 200MG PER DAY

REACTIONS (2)
  - DIZZINESS [None]
  - FEELING DRUNK [None]
